FAERS Safety Report 4653242-4 (Version None)
Quarter: 2005Q2

REPORT INFORMATION
  Report Type: 
  Country: None (occurrence: None)
  Receive Date: 20050505
  Receipt Date: 20050330
  Transmission Date: 20051028
  Serious: Yes (Death)
  Sender: FDA-Public Use
  Company Number: NL-AMGEN-UK124171

PATIENT
  Sex: Female
  Weight: 55 kg

DRUGS (14)
  1. AMG 099073 [Suspect]
     Indication: HYPERPARATHYROIDISM SECONDARY
     Route: 048
     Dates: start: 20041125, end: 20050323
  2. ARANESP [Concomitant]
     Route: 058
     Dates: start: 20050307
  3. LIPITOR [Concomitant]
     Route: 048
     Dates: start: 20040414
  4. ADALAT [Concomitant]
     Route: 048
     Dates: start: 20040414
  5. ASCAL [Concomitant]
     Route: 048
     Dates: start: 20040414
  6. MONO-CEDOCARD [Concomitant]
     Route: 048
     Dates: start: 20040414
  7. DIGOXIN [Concomitant]
     Route: 048
     Dates: start: 20050210
  8. CALCICHEW [Concomitant]
     Route: 048
  9. VITAMIN C [Concomitant]
     Route: 048
     Dates: start: 20050307
  10. FOLIC ACID [Concomitant]
     Route: 048
     Dates: start: 20050307
  11. VITAMIN B COMPLEX CAP [Concomitant]
     Route: 048
     Dates: start: 20050307
  12. ETALPHA [Concomitant]
     Route: 048
     Dates: start: 20050317
  13. LOPERAMIDE HCL [Concomitant]
     Route: 048
     Dates: start: 20040401
  14. TEMAZEPAM [Concomitant]
     Route: 048
     Dates: start: 20040414

REACTIONS (2)
  - CARDIAC DEATH [None]
  - HYPOCALCAEMIA [None]
